FAERS Safety Report 5899163-0 (Version None)
Quarter: 2008Q3

REPORT INFORMATION
  Report Type: 
  Country: None (occurrence: None)
  Receive Date: 20080925
  Receipt Date: 20080911
  Transmission Date: 20090109
  Serious: No
  Sender: FDA-Public Use
  Company Number: US-B.I. PHARMACEUTICALS,INC./RIDGEFIELD-2008-BP-14316BP

PATIENT
  Age: 74 Year
  Sex: Female

DRUGS (4)
  1. ZANTAC 150 [Suspect]
     Indication: GASTROOESOPHAGEAL REFLUX DISEASE
     Dosage: 600MG
     Route: 048
     Dates: start: 20080911
  2. PREDNISONE [Concomitant]
  3. HYDROCODONE BITARTRATE [Concomitant]
  4. INHALER [Concomitant]

REACTIONS (2)
  - DRUG INEFFECTIVE [None]
  - OESOPHAGEAL PAIN [None]
